FAERS Safety Report 4984432-9 (Version None)
Quarter: 2006Q2

REPORT INFORMATION
  Report Type: 
  Country: None (occurrence: None)
  Receive Date: 20060427
  Receipt Date: 20060425
  Transmission Date: 20061013
  Serious: Yes (Other)
  Sender: FDA-Public Use
  Company Number: US-GLAXOSMITHKLINE-A0603234A

PATIENT
  Age: 48 Year
  Sex: Female

DRUGS (7)
  1. LAMICTAL [Suspect]
     Indication: AFFECTIVE DISORDER
     Dosage: 25MG PER DAY
     Route: 048
  2. KEPPRA [Concomitant]
  3. ABILIFY [Concomitant]
  4. PROZAC [Concomitant]
  5. BUSPAR [Concomitant]
  6. DITROPAN [Concomitant]
  7. PROVIGIL [Concomitant]

REACTIONS (4)
  - ANGER [None]
  - CRYING [None]
  - MOOD SWINGS [None]
  - SUICIDAL IDEATION [None]
